FAERS Safety Report 9028228 (Version 1)
Quarter: 2013Q1

REPORT INFORMATION
  Report Type: Spontaneous
  Country: US (occurrence: US)
  Receive Date: 20130124
  Receipt Date: 20130124
  Transmission Date: 20140127
  Serious: No
  Sender: FDA-Public Use
  Company Number: US-PFIZER INC-2013028270

PATIENT
  Age: 79 Year
  Sex: Female
  Weight: 56.69 kg

DRUGS (3)
  1. MORPHINE SULFATE [Suspect]
     Indication: HYPERTENSION
     Dosage: UNK
     Dates: start: 201110
  2. CORGARD [Concomitant]
     Indication: MYOCARDIAL INFARCTION
     Dosage: 40 MG, 2X/DAY
     Dates: start: 1994
  3. ACETYLSALICYLIC ACID [Concomitant]
     Indication: ANTICOAGULANT THERAPY
     Dosage: 81 MG, DAILY

REACTIONS (1)
  - Drug ineffective for unapproved indication [Unknown]
